FAERS Safety Report 23625018 (Version 3)
Quarter: 2024Q2

REPORT INFORMATION
  Report Type: Spontaneous
  Country: CL (occurrence: CL)
  Receive Date: 20240313
  Receipt Date: 20240524
  Transmission Date: 20240716
  Serious: Yes (Hospitalization)
  Sender: FDA-Public Use
  Company Number: CL-JNJFOC-20240319726

PATIENT
  Age: 62 Year
  Sex: Female

DRUGS (1)
  1. REMICADE [Suspect]
     Active Substance: INFLIXIMAB
     Indication: Crohn^s disease
     Dosage: AT 0, 2 AND 6 WEEKS
     Route: 041
     Dates: start: 201501

REACTIONS (3)
  - Colitis ulcerative [Unknown]
  - Colectomy total [Unknown]
  - Drug ineffective [Unknown]
